FAERS Safety Report 25101059 (Version 2)
Quarter: 2025Q1

REPORT INFORMATION
  Report Type: Spontaneous
  Country: ES (occurrence: ES)
  Receive Date: 20250320
  Receipt Date: 20250331
  Transmission Date: 20250408
  Serious: Yes (Other)
  Sender: MYLAN
  Company Number: ES-OTSUKA-2024_002562

PATIENT
  Age: 14 Year
  Sex: Male

DRUGS (11)
  1. ARIPIPRAZOLE [Suspect]
     Active Substance: ARIPIPRAZOLE
     Indication: Circadian rhythm sleep disorder
  2. ARIPIPRAZOLE [Suspect]
     Active Substance: ARIPIPRAZOLE
     Indication: Insomnia
  3. ARIPIPRAZOLE [Suspect]
     Active Substance: ARIPIPRAZOLE
     Indication: Seizure
  4. ARIPIPRAZOLE [Suspect]
     Active Substance: ARIPIPRAZOLE
     Indication: Non-24-hour sleep-wake disorder
  5. SERTRALINE [Suspect]
     Active Substance: SERTRALINE HYDROCHLORIDE
     Indication: Non-24-hour sleep-wake disorder
  6. OXAZEPAM [Suspect]
     Active Substance: OXAZEPAM
     Indication: Non-24-hour sleep-wake disorder
  7. LEVOMEPROMAZINE [Concomitant]
     Active Substance: LEVOMEPROMAZINE
     Indication: Insomnia
  8. LEVOMEPROMAZINE [Concomitant]
     Active Substance: LEVOMEPROMAZINE
     Indication: Circadian rhythm sleep disorder
  9. LEVOMEPROMAZINE [Concomitant]
     Active Substance: LEVOMEPROMAZINE
     Indication: Seizure
  10. LEVOMEPROMAZINE [Concomitant]
     Active Substance: LEVOMEPROMAZINE
     Indication: Non-24-hour sleep-wake disorder
  11. MELATONIN [Concomitant]
     Active Substance: MELATONIN
     Indication: Non-24-hour sleep-wake disorder
     Dosage: 4 MILLIGRAM, PM (AT NIGHT AT HIGH DOSES)

REACTIONS (5)
  - Anxiety [Recovered/Resolved]
  - Aggression [Unknown]
  - Therapy non-responder [Unknown]
  - Somnolence [Unknown]
  - Product use in unapproved indication [Unknown]
